FAERS Safety Report 6049660-2 (Version None)
Quarter: 2009Q1

REPORT INFORMATION
  Report Type: 
  Country: None (occurrence: None)
  Receive Date: 20090124
  Receipt Date: 20090116
  Transmission Date: 20090719
  Serious: Yes (Other)
  Sender: FDA-Public Use
  Company Number: US-PFIZER INC-2008160574

PATIENT
  Sex: Female

DRUGS (9)
  1. CELEBREX [Suspect]
     Indication: POLYARTHRITIS
     Dosage: 200 MG, 1X/DAY
  2. CELEBREX [Suspect]
     Indication: MUSCLE DISORDER
  3. CELEBREX [Suspect]
     Indication: CARPAL TUNNEL SYNDROME
  4. FUROSEMIDE [Concomitant]
     Dosage: UNK
  5. KLOR-CON [Concomitant]
     Indication: BLOOD POTASSIUM DECREASED
     Dosage: 20 MEQ, UNK
  6. LEVOTHYROXINE [Concomitant]
     Dosage: UNK
  7. PRAVASTATIN [Concomitant]
     Dosage: UNK
  8. NEXIUM [Concomitant]
     Dosage: 40 MG, UNK
  9. ACETYLSALICYLIC ACID [Concomitant]
     Indication: BLOOD DISORDER
     Dosage: UNK

REACTIONS (2)
  - KNEE OPERATION [None]
  - NECK PAIN [None]
